FAERS Safety Report 4425139-6 (Version None)
Quarter: 2004Q3

REPORT INFORMATION
  Report Type: 
  Country: None (occurrence: None)
  Receive Date: 20040811
  Receipt Date: 20040811
  Transmission Date: 20050211
  Serious: Yes (Hospitalization)
  Sender: FDA-Public Use
  Company Number: None

PATIENT
  Age: 58 Year
  Sex: Male
  Weight: 72 kg

DRUGS (2)
  1. CISPLATIN [Suspect]
     Dosage: 88 MG QD X 2 DAYS IV
     Route: 042
     Dates: start: 20040517, end: 20040518
  2. ETOPOSIDE [Suspect]
     Dosage: 175 MG QD X 3 DAY IV
     Route: 042
     Dates: start: 20040517, end: 20040519

REACTIONS (3)
  - ASTHENIA [None]
  - FATIGUE [None]
  - FEBRILE NEUTROPENIA [None]
